FAERS Safety Report 8912147 (Version 1)
Quarter: 2012Q4

REPORT INFORMATION
  Report Type: 
  Country: US (occurrence: US)
  Receive Date: 20121115
  Receipt Date: 20121115
  Transmission Date: 20130627
  Serious: Yes (Other)
  Sender: FDA-Public Use
  Company Number: US-INCYTE CORPORATION-2012IN002281

PATIENT
  Age: 56 Year
  Sex: Female

DRUGS (2)
  1. JAKAFI [Suspect]
     Indication: MYELOFIBROSIS
     Dosage: 15 mg, bid
     Route: 048
     Dates: start: 20120105, end: 20120420
  2. HYDROXYUREA [Concomitant]

REACTIONS (1)
  - Bone marrow transplant [Unknown]
